FAERS Safety Report 10668379 (Version 2)
Quarter: 2015Q1

REPORT INFORMATION
  Report Type: Spontaneous
  Country: GB (occurrence: GB)
  Receive Date: 20141222
  Receipt Date: 20150115
  Transmission Date: 20150720
  Serious: Yes (Other)
  Sender: FDA-Public Use
  Company Number: GB-TEVA-529787ISR

PATIENT
  Age: 69 Year
  Sex: Female

DRUGS (2)
  1. ENBREL [Suspect]
     Active Substance: ETANERCEPT
     Dosage: UNK
  2. METHOTREXATE [Suspect]
     Active Substance: METHOTREXATE

REACTIONS (4)
  - Procedural pain [Unknown]
  - Fall [Unknown]
  - Tooth abscess [Not Recovered/Not Resolved]
  - Oral infection [Unknown]
